FAERS Safety Report 15598765 (Version 2)
Quarter: 2019Q1

REPORT INFORMATION
  Report Type: Report from Study
  Country: GB (occurrence: GB)
  Receive Date: 20181108
  Receipt Date: 20190208
  Transmission Date: 20190417
  Serious: Yes (Hospitalization)
  Sender: FDA-Public Use
  Company Number: GB-JNJFOC-20181102816

PATIENT
  Sex: Female

DRUGS (1)
  1. STELARA [Suspect]
     Active Substance: USTEKINUMAB
     Indication: PSORIASIS
     Route: 058
     Dates: start: 20180206

REACTIONS (4)
  - Urinary tract infection [Not Recovered/Not Resolved]
  - Liver function test abnormal [Unknown]
  - Psoriasis [Not Recovered/Not Resolved]
  - Sepsis [Unknown]
